FAERS Safety Report 17996524 (Version 2)
Quarter: 2020Q4

REPORT INFORMATION
  Report Type: Spontaneous
  Country: FR (occurrence: FR)
  Receive Date: 20200708
  Receipt Date: 20201107
  Transmission Date: 20210113
  Serious: Yes (Hospitalization)
  Sender: FDA-Public Use
  Company Number: FR-TEVA-2020-FR-1797391

PATIENT
  Age: 90 Year
  Sex: Female
  Weight: 78 kg

DRUGS (12)
  1. LANSOYL [Concomitant]
     Active Substance: MINERAL OIL
  2. LACTULOSE. [Concomitant]
     Active Substance: LACTULOSE
  3. PERFALGAN [Suspect]
     Active Substance: ACETAMINOPHEN
     Indication: PAIN
     Dosage: 4 DOSAGE FORMS
     Route: 042
     Dates: start: 20200410, end: 20200515
  4. TARDYFERON [Concomitant]
     Active Substance: FERROUS SULFATE
  5. DIFFU K [Concomitant]
     Active Substance: POTASSIUM CHLORIDE
  6. SPECIAFOLDINE [Concomitant]
     Active Substance: FOLIC ACID
  7. LOVENOX [Suspect]
     Active Substance: ENOXAPARIN SODIUM
     Indication: PROPHYLAXIS
     Dosage: 1 DOSAGE FORMS
     Route: 042
     Dates: start: 20200430, end: 20200515
  8. DUROGESIC [Suspect]
     Active Substance: FENTANYL
     Indication: PAIN
     Dosage: 1 DOSAGE FORMS
     Route: 062
     Dates: start: 20200411, end: 20200515
  9. ALLOPURINOL. [Suspect]
     Active Substance: ALLOPURINOL
     Indication: PRODUCT USED FOR UNKNOWN INDICATION
     Dosage: 2 DOSAGE FORMS
     Route: 048
     Dates: start: 20200318, end: 20200515
  10. MORPHINE RENAUDIN [Suspect]
     Active Substance: MORPHINE
     Indication: PAIN
     Dosage: 3 MG
     Route: 042
     Dates: start: 20200413, end: 20200515
  11. LASILIX [Concomitant]
     Active Substance: FUROSEMIDE
  12. XANAX [Concomitant]
     Active Substance: ALPRAZOLAM

REACTIONS (1)
  - Drug reaction with eosinophilia and systemic symptoms [Recovered/Resolved]

NARRATIVE: CASE EVENT DATE: 20200510
